FAERS Safety Report 8111185-8 (Version None)
Quarter: 2012Q1

REPORT INFORMATION
  Report Type: 
  Country: None (occurrence: None)
  Receive Date: 20120203
  Receipt Date: 20110609
  Transmission Date: 20120608
  Serious: No
  Sender: FDA-Public Use
  Company Number: US-GLAXOSMITHKLINE-A0930941A

PATIENT
  Sex: Female

DRUGS (1)
  1. LAMICTAL [Suspect]
     Indication: CONVULSION
     Route: 065

REACTIONS (7)
  - RASH [None]
  - FOAMING AT MOUTH [None]
  - OROPHARYNGEAL PAIN [None]
  - DECREASED APPETITE [None]
  - MENTAL IMPAIRMENT [None]
  - ADVERSE EVENT [None]
  - SWOLLEN TONGUE [None]
